FAERS Safety Report 6875628-X (Version None)
Quarter: 2010Q3

REPORT INFORMATION
  Report Type: 
  Country: None (occurrence: None)
  Receive Date: 20100727
  Receipt Date: 20100716
  Transmission Date: 20110219
  Serious: Yes (Hospitalization)
  Sender: FDA-Public Use
  Company Number: AT-ASTRAZENECA-2008PK01364

PATIENT
  Sex: Female
  Weight: 72 kg

DRUGS (3)
  1. ARIMIDEX [Suspect]
     Indication: BREAST CANCER
     Route: 048
     Dates: start: 20040501, end: 20070601
  2. ARIMIDEX [Suspect]
     Route: 048
     Dates: start: 20070614, end: 20090601
  3. AUGMENTIN '125' [Concomitant]
     Indication: ASTHMA
     Route: 042

REACTIONS (2)
  - DEEP VEIN THROMBOSIS [None]
  - VENOUS INSUFFICIENCY [None]
